FAERS Safety Report 5936837-7 (Version None)
Quarter: 2008Q4

REPORT INFORMATION
  Report Type: 
  Country: None (occurrence: None)
  Receive Date: 20081029
  Receipt Date: 20081015
  Transmission Date: 20090506
  Serious: Yes (Hospitalization)
  Sender: FDA-Public Use
  Company Number: 16456

PATIENT
  Sex: Female

DRUGS (1)
  1. DILTIAZEM [Suspect]
     Indication: HYPERTENSION

REACTIONS (3)
  - ASTHENIA [None]
  - DIZZINESS [None]
  - HEART RATE DECREASED [None]
